FAERS Safety Report 5612321-5 (Version None)
Quarter: 2008Q1

REPORT INFORMATION
  Report Type: 
  Country: None (occurrence: None)
  Receive Date: 20080131
  Receipt Date: 20080131
  Transmission Date: 20080703
  Serious: Yes (Other)
  Sender: FDA-Public Use
  Company Number: None

PATIENT
  Sex: Female
  Weight: 56.6996 kg

DRUGS (2)
  1. BUPROPION HYDROCHLORIDE SR   200 MG SR   EON LABS, SANDOZ [Suspect]
     Indication: ANXIETY
     Dosage: ONE TAB  2X DAILY  PO
     Route: 048
     Dates: start: 20080112, end: 20080130
  2. BUPROPION HYDROCHLORIDE SR   200 MG SR   EON LABS, SANDOZ [Suspect]
     Indication: DEPRESSION
     Dosage: ONE TAB  2X DAILY  PO
     Route: 048
     Dates: start: 20080112, end: 20080130

REACTIONS (4)
  - DRUG INEFFECTIVE [None]
  - PHARMACEUTICAL PRODUCT COMPLAINT [None]
  - THERAPEUTIC RESPONSE UNEXPECTED WITH DRUG SUBSTITUTION [None]
  - WITHDRAWAL SYNDROME [None]
